FAERS Safety Report 9717607 (Version 1)
Quarter: 2013Q4

REPORT INFORMATION
  Report Type: Spontaneous
  Country: US (occurrence: US)
  Receive Date: 20131127
  Receipt Date: 20131127
  Transmission Date: 20140711
  Serious: No
  Sender: FDA-Public Use
  Company Number: US-TEVA-447693USA

PATIENT
  Age: 26 Year
  Sex: Female
  Weight: 91.71 kg

DRUGS (1)
  1. PLAN B ONE-STEP [Suspect]
     Indication: POST COITAL CONTRACEPTION
     Dosage: 1.5 MILLIGRAM DAILY;
     Route: 048
     Dates: start: 20130909, end: 20130909

REACTIONS (2)
  - Menstruation irregular [Recovered/Resolved]
  - Pregnancy [Unknown]
